FAERS Safety Report 21383524 (Version 3)
Quarter: 2022Q4

REPORT INFORMATION
  Report Type: Report from Study
  Country: US (occurrence: US)
  Receive Date: 20220927
  Receipt Date: 20221110
  Transmission Date: 20230112
  Serious: Yes (Hospitalization, Other)
  Sender: FDA-Public Use
  Company Number: US-BRISTOL-MYERS SQUIBB COMPANY-2022-090857

PATIENT
  Age: 54 Year
  Sex: Male
  Weight: 82.60 kg

DRUGS (25)
  1. LENALIDOMIDE [Suspect]
     Active Substance: LENALIDOMIDE
     Indication: Follicular lymphoma
     Route: 048
     Dates: start: 20220202, end: 20220222
  2. LENALIDOMIDE [Suspect]
     Active Substance: LENALIDOMIDE
     Route: 048
     Dates: start: 20220302, end: 20220322
  3. LENALIDOMIDE [Suspect]
     Active Substance: LENALIDOMIDE
     Route: 048
     Dates: start: 20220401, end: 20220421
  4. LENALIDOMIDE [Suspect]
     Active Substance: LENALIDOMIDE
     Route: 048
     Dates: start: 20220429, end: 20220519
  5. LENALIDOMIDE [Suspect]
     Active Substance: LENALIDOMIDE
     Route: 048
     Dates: start: 20220527, end: 20220617
  6. LENALIDOMIDE [Suspect]
     Active Substance: LENALIDOMIDE
     Route: 048
     Dates: start: 20220805, end: 20220825
  7. EPCORITAMAB [Suspect]
     Active Substance: EPCORITAMAB
     Indication: Follicular lymphoma
     Dosage: SINGLE DOSE
     Route: 058
     Dates: start: 20220202, end: 20220202
  8. EPCORITAMAB [Suspect]
     Active Substance: EPCORITAMAB
     Dosage: INTERMEDIATE DOSE, SINGLE
     Route: 058
     Dates: start: 20220209, end: 20220209
  9. EPCORITAMAB [Suspect]
     Active Substance: EPCORITAMAB
     Dosage: FULL DOSE
     Route: 058
     Dates: start: 20220216, end: 20220323
  10. EPCORITAMAB [Suspect]
     Active Substance: EPCORITAMAB
     Dosage: FULL DOSE
     Route: 058
     Dates: start: 20220401, end: 20220527
  11. EPCORITAMAB [Suspect]
     Active Substance: EPCORITAMAB
     Route: 058
     Dates: start: 20220708, end: 20220708
  12. EPCORITAMAB [Suspect]
     Active Substance: EPCORITAMAB
     Route: 058
     Dates: start: 20220812, end: 20220812
  13. RITUXIMAB [Suspect]
     Active Substance: RITUXIMAB
     Indication: Follicular lymphoma
     Route: 042
     Dates: start: 20220202, end: 20220223
  14. RITUXIMAB [Suspect]
     Active Substance: RITUXIMAB
     Route: 042
     Dates: start: 20220302, end: 20220527
  15. RITUXIMAB [Suspect]
     Active Substance: RITUXIMAB
     Route: 042
     Dates: start: 20220708, end: 20220708
  16. ASPIRIN09-SEP-2022 [Concomitant]
     Indication: Product used for unknown indication
     Route: 065
     Dates: start: 20220909, end: 20220909
  17. CHOLECALCIFEROL [Concomitant]
     Active Substance: CHOLECALCIFEROL
     Indication: Product used for unknown indication
     Route: 065
     Dates: start: 20210706
  18. IBUPROFEN [Concomitant]
     Active Substance: IBUPROFEN
     Indication: Product used for unknown indication
     Route: 065
     Dates: start: 20220219
  19. LOSARTAN [Concomitant]
     Active Substance: LOSARTAN
     Indication: Product used for unknown indication
     Route: 065
     Dates: start: 202109
  20. ONDANSETRON [Concomitant]
     Active Substance: ONDANSETRON
     Indication: Product used for unknown indication
     Route: 065
     Dates: start: 20220202
  21. PFIZER-BIONTECH COVID-19 VACCINE [Concomitant]
     Active Substance: TOZINAMERAN
     Indication: Product used for unknown indication
     Dosage: FIRST DOSE
     Route: 065
     Dates: start: 20210302
  22. PFIZER-BIONTECH COVID-19 VACCINE [Concomitant]
     Active Substance: TOZINAMERAN
     Dosage: SECOND DOSE
     Route: 065
     Dates: start: 20210323
  23. PFIZER-BIONTECH COVID-19 VACCINE [Concomitant]
     Active Substance: TOZINAMERAN
     Dosage: BOOSTER DOSE
     Route: 065
     Dates: start: 20211127
  24. PFIZER-BIONTECH COVID-19 VACCINE [Concomitant]
     Active Substance: TOZINAMERAN
     Dosage: BOOSTER DOSE
     Route: 065
     Dates: start: 20220617
  25. DIPHENHYDRAMINE [Concomitant]
     Active Substance: DIPHENHYDRAMINE
     Indication: Product used for unknown indication
     Route: 065
     Dates: start: 20220429, end: 20220708

REACTIONS (4)
  - COVID-19 pneumonia [Recovered/Resolved]
  - Hypoxia [Recovering/Resolving]
  - Pneumonia [Not Recovered/Not Resolved]
  - Condition aggravated [Recovering/Resolving]

NARRATIVE: CASE EVENT DATE: 20220804
